FAERS Safety Report 24081916 (Version 1)
Quarter: 2024Q3

REPORT INFORMATION
  Report Type: Spontaneous
  Country: US (occurrence: US)
  Receive Date: 20240712
  Receipt Date: 20240712
  Transmission Date: 20241017
  Serious: Yes (Other)
  Sender: ZYDUS PHARM
  Company Number: US-CADILA HEALTHCARE LIMITED-US-ZYDUS-109253

PATIENT

DRUGS (3)
  1. TRANEXAMIC ACID [Suspect]
     Active Substance: TRANEXAMIC ACID
     Indication: Haemorrhage
     Dosage: UNK
     Route: 065
  2. FENTANYL [Concomitant]
     Active Substance: FENTANYL\FENTANYL CITRATE
     Indication: Sedation
     Dosage: UNK
     Route: 065
  3. PROPOFOL [Concomitant]
     Active Substance: PROPOFOL
     Indication: Sedation
     Dosage: UNK
     Route: 065

REACTIONS (9)
  - Agitation [Unknown]
  - Hyperreflexia [Recovering/Resolving]
  - Hypertension [Unknown]
  - Hyperthermia [Recovering/Resolving]
  - Muscle rigidity [Unknown]
  - Tachycardia [Unknown]
  - Tremor [Unknown]
  - Clonus [Recovering/Resolving]
  - Disorientation [Unknown]
